FAERS Safety Report 12509591 (Version 3)
Quarter: 2016Q4

REPORT INFORMATION
  Report Type: Spontaneous
  Country: BR (occurrence: BR)
  Receive Date: 20160629
  Receipt Date: 20161116
  Transmission Date: 20170207
  Serious: Yes (Hospitalization, Other)
  Sender: FDA-Public Use
  Company Number: BR-DSJP-DSE-2016-121398

PATIENT

DRUGS (9)
  1. BENICAR HCT [Suspect]
     Active Substance: HYDROCHLOROTHIAZIDE\OLMESARTAN MEDOXOMIL
     Dosage: 20/12.5, QD
     Dates: start: 20160620, end: 20161021
  2. RITMONORM [Suspect]
     Active Substance: PROPAFENONE HYDROCHLORIDE
     Indication: PRODUCT USED FOR UNKNOWN INDICATION
     Dosage: 300 MG, QD
     Dates: start: 201606
  3. BENICAR HCT [Suspect]
     Active Substance: HYDROCHLOROTHIAZIDE\OLMESARTAN MEDOXOMIL
     Indication: HYPERTENSION
     Dosage: 20/12.5, UNK
     Dates: start: 201606, end: 201606
  4. CARVEDILOL. [Suspect]
     Active Substance: CARVEDILOL
     Indication: PRODUCT USED FOR UNKNOWN INDICATION
     Dosage: 12.5, BID
     Dates: start: 201606
  5. SPIRIVA RESPIMAT [Concomitant]
     Active Substance: TIOTROPIUM BROMIDE
     Indication: EMPHYSEMA
     Dosage: 2.5, QD
     Dates: start: 2015
  6. STRIVERDI RESPIMAT [Concomitant]
     Active Substance: OLODATEROL HYDROCHLORIDE
     Indication: EMPHYSEMA
     Dosage: 2.5, QD
     Dates: start: 2016
  7. PURAN [Concomitant]
     Active Substance: LEVOTHYROXINE SODIUM
     Indication: HYPERTHYROIDISM
     Dosage: 25 NG, QD
  8. ESPIRONOLACTONA [Suspect]
     Active Substance: SPIRONOLACTONE
     Indication: PRODUCT USED FOR UNKNOWN INDICATION
     Dosage: 25 MG, QD
     Dates: start: 201606
  9. ROSUCOR [Concomitant]
     Active Substance: ROSUVASTATIN CALCIUM
     Indication: BLOOD CHOLESTEROL INCREASED
     Dosage: 10 MG, QD

REACTIONS (9)
  - Joint dislocation [Recovered/Resolved]
  - Pneumonia [Recovered/Resolved]
  - Malaise [Recovered/Resolved]
  - Foot fracture [Recovered/Resolved]
  - Blood glucose increased [Recovered/Resolved]
  - Fall [Recovered/Resolved]
  - Confusional state [Recovered/Resolved]
  - Intentional product misuse [Not Recovered/Not Resolved]
  - Blood pressure fluctuation [Recovered/Resolved]

NARRATIVE: CASE EVENT DATE: 2016
